FAERS Safety Report 4710327-1 (Version None)
Quarter: 2005Q3

REPORT INFORMATION
  Report Type: 
  Country: None (occurrence: None)
  Receive Date: 20050707
  Receipt Date: 20050621
  Transmission Date: 20060218
  Serious: Yes (Other)
  Sender: FDA-Public Use
  Company Number: WAES 0506KOR00011

PATIENT
  Age: 79 Year
  Sex: Female

DRUGS (4)
  1. PRIMAXIN [Suspect]
     Indication: PNEUMONIA
     Dosage: 500 MG/Q8H, IV
     Route: 042
     Dates: start: 20050610, end: 20050613
  2. DOMPERIDONE [Concomitant]
  3. FAMOTIDINE [Concomitant]
  4. VANCOMYCIN [Concomitant]

REACTIONS (2)
  - EXTRAPYRAMIDAL DISORDER [None]
  - PYREXIA [None]
